FAERS Safety Report 16609270 (Version 1)
Quarter: 2019Q3

REPORT INFORMATION
  Report Type: Spontaneous
  Country: US (occurrence: US)
  Receive Date: 20190607
  Receipt Date: 20190607
  Transmission Date: 20191004
  Serious: Yes (Other)
  Sender: FDA-Public Use
  Company Number: None

PATIENT
  Age: 22 Year
  Sex: Male
  Weight: 84.82 kg

DRUGS (1)
  1. BUPRENORPHINE/NALOXONE 8/2 [Suspect]
     Active Substance: BUPRENORPHINE\NALOXONE
     Indication: DRUG ABUSE
     Route: 060
     Dates: start: 20190523, end: 20190526

REACTIONS (4)
  - Pruritus [None]
  - Nausea [None]
  - Headache [None]
  - Rash [None]

NARRATIVE: CASE EVENT DATE: 20190526
